FAERS Safety Report 10637410 (Version 1)
Quarter: 2014Q4

REPORT INFORMATION
  Report Type: Spontaneous
  Country: US (occurrence: None)
  Receive Date: 20141204
  Receipt Date: 20141204
  Transmission Date: 20150529
  Serious: Yes (Disabling)
  Sender: FDA-Public Use
  Company Number: None

PATIENT
  Age: 34 Year
  Sex: Female
  Weight: 58.97 kg

DRUGS (1)
  1. REBIF [Suspect]
     Active Substance: INTERFERON BETA-1A
     Indication: MULTIPLE SCLEROSIS
     Dosage: 1 SHOT
     Route: 030
     Dates: start: 20130513, end: 20141003

REACTIONS (11)
  - Muscle spasms [None]
  - Influenza like illness [None]
  - Chills [None]
  - Thirst [None]
  - Constipation [None]
  - Injection site erythema [None]
  - Headache [None]
  - Nausea [None]
  - Abdominal distension [None]
  - Asthenia [None]
  - Product quality issue [None]

NARRATIVE: CASE EVENT DATE: 20141009
